FAERS Safety Report 6121288-5 (Version None)
Quarter: 2009Q1

REPORT INFORMATION
  Report Type: 
  Country: None (occurrence: None)
  Receive Date: 20090313
  Receipt Date: 20090225
  Transmission Date: 20090719
  Serious: Yes (Hospitalization)
  Sender: FDA-Public Use
  Company Number: 8040772

PATIENT
  Age: 59 Year
  Sex: Male

DRUGS (3)
  1. KEPPRA [Suspect]
     Dosage: 500 MG /D
     Dates: end: 20080801
  2. KEPPRA [Suspect]
     Dosage: 1000 MG 1/D PO
     Route: 048
     Dates: start: 20080801
  3. ANTIBIOTICS [Concomitant]

REACTIONS (9)
  - CHOKING [None]
  - COUGH [None]
  - DYSPHAGIA [None]
  - LIP HAEMORRHAGE [None]
  - MOUTH HAEMORRHAGE [None]
  - NO THERAPEUTIC RESPONSE [None]
  - ORAL PAIN [None]
  - PHARYNGEAL HAEMORRHAGE [None]
  - THERAPY REGIMEN CHANGED [None]
